FAERS Safety Report 13662206 (Version 2)
Quarter: 2017Q4

REPORT INFORMATION
  Report Type: Report from Study
  Country: BE (occurrence: BE)
  Receive Date: 20170616
  Receipt Date: 20171214
  Transmission Date: 20180320
  Serious: Yes (Other)
  Sender: FDA-Public Use
  Company Number: PHHY2016BE065834

PATIENT
  Age: 45 Year
  Sex: Female

DRUGS (2)
  1. VESICARE [Concomitant]
     Active Substance: SOLIFENACIN SUCCINATE
     Indication: PRODUCT USED FOR UNKNOWN INDICATION
     Dosage: 10 MG, QHS
     Route: 048
  2. GILENYA [Suspect]
     Active Substance: FINGOLIMOD HYDROCHLORIDE
     Indication: MULTIPLE SCLEROSIS
     Dosage: 0.5 MG, QD
     Route: 048
     Dates: start: 20140313

REACTIONS (5)
  - Cystitis [Recovering/Resolving]
  - Abdominal pain upper [Recovering/Resolving]
  - Nausea [Not Recovered/Not Resolved]
  - Decreased appetite [Recovering/Resolving]
  - Gastric ulcer [Not Recovered/Not Resolved]

NARRATIVE: CASE EVENT DATE: 20170102
